FAERS Safety Report 20746588 (Version 3)
Quarter: 2022Q2

REPORT INFORMATION
  Report Type: Report from Study
  Country: BR (occurrence: None)
  Receive Date: 20220425
  Receipt Date: 20220629
  Transmission Date: 20220721
  Serious: Yes (Hospitalization)
  Sender: FDA-Public Use
  Company Number: BR-ROCHE-3067862

PATIENT
  Age: 57 Year
  Sex: Female
  Weight: 74 kg

DRUGS (11)
  1. ATEZOLIZUMAB [Suspect]
     Active Substance: ATEZOLIZUMAB
     Indication: Triple negative breast cancer
     Dosage: MAINTENANCE WILL BE ADMINISTERED BY IV, 1200 MG EVERY 3 WEEKS TO COMPLETE 1 YEAR. ON 16/NOV/2021: LA
     Route: 041
     Dates: start: 20210923
  2. PACLITAXEL [Suspect]
     Active Substance: PACLITAXEL
     Indication: Triple negative breast cancer
     Dosage: ON 26/JAN/2022: LAST DOSE DRUG 140.8 MG PACLITAXELM ADMINISTERED PRIOR TO AE AND SAE ONSET
     Route: 041
     Dates: start: 20210923
  3. DOXORUBICIN [Suspect]
     Active Substance: DOXORUBICIN
     Indication: Triple negative breast cancer
     Dosage: 09/MAR/2022: LAST DOSE OF DOXORUBICIN 100.8 MG ADMINISTERED PRIOR TO AE AND SAE ONSET
     Route: 041
     Dates: start: 20220202
  4. CYCLOPHOSPHAMIDE [Suspect]
     Active Substance: CYCLOPHOSPHAMIDE
     Indication: Triple negative breast cancer
     Dosage: 09/MAR/2022: LAST DOSE OF CYCLOPHOSPHAMIDE 1008 MG ADMINISTERED PRIOR TO AE AND SAE ONSET
     Route: 041
     Dates: start: 20220202
  5. FILGRASTIM [Suspect]
     Active Substance: FILGRASTIM
     Indication: Triple negative breast cancer
     Dosage: CYCLE 4
     Route: 058
     Dates: start: 20220203, end: 20220209
  6. FILGRASTIM [Suspect]
     Active Substance: FILGRASTIM
     Dosage: CYCLE 4
     Route: 058
     Dates: start: 20220217, end: 20220221
  7. FILGRASTIM [Suspect]
     Active Substance: FILGRASTIM
     Dosage: CYCLE 5
     Route: 058
     Dates: start: 20220310, end: 20220311
  8. CIPROFLOXACIN [Concomitant]
     Active Substance: CIPROFLOXACIN
     Dates: start: 20220407, end: 20220411
  9. METRONIDAZOLE [Concomitant]
     Active Substance: METRONIDAZOLE
     Dates: start: 20220407, end: 20220411
  10. PREDNISONE [Concomitant]
     Active Substance: PREDNISONE
     Dates: start: 20220412, end: 20220416
  11. PREDNISONE [Concomitant]
     Active Substance: PREDNISONE
     Dates: start: 20220417, end: 20220421

REACTIONS (1)
  - Enterocolitis infectious [Recovered/Resolved]

NARRATIVE: CASE EVENT DATE: 20220401
